FAERS Safety Report 9632332 (Version 1)
Quarter: 2013Q4

REPORT INFORMATION
  Report Type: Spontaneous
  Country: US (occurrence: US)
  Receive Date: 20131018
  Receipt Date: 20131018
  Transmission Date: 20140711
  Serious: No
  Sender: FDA-Public Use
  Company Number: US-009507513-1309USA011879

PATIENT
  Sex: 0
  Weight: 87.75 kg

DRUGS (2)
  1. NEXPLANON [Suspect]
     Dosage: FAILED INSERTION
     Route: 059
     Dates: start: 20130918, end: 20130918
  2. NEXPLANON [Suspect]
     Dosage: 1 ROD / THREE YEARS
     Route: 059
     Dates: start: 20130918

REACTIONS (3)
  - Device difficult to use [Recovered/Resolved]
  - Product quality issue [Unknown]
  - No adverse event [Unknown]
